FAERS Safety Report 6116861-4 (Version None)
Quarter: 2009Q1

REPORT INFORMATION
  Report Type: 
  Country: None (occurrence: None)
  Receive Date: 20090314
  Receipt Date: 20090105
  Transmission Date: 20090719
  Serious: No
  Sender: FDA-Public Use
  Company Number: US-ABBOTT-08P-163-0495126-00

PATIENT
  Sex: Male
  Weight: 122.58 kg

DRUGS (3)
  1. HUMIRA [Suspect]
     Indication: CROHN'S DISEASE
  2. HUMIRA [Suspect]
  3. BENICAR [Concomitant]
     Indication: HYPERTENSION

REACTIONS (4)
  - COUGH [None]
  - DYSPNOEA [None]
  - LOWER RESPIRATORY TRACT INFECTION [None]
  - PYREXIA [None]
